FAERS Safety Report 8917118 (Version 2)
Quarter: 2012Q4

REPORT INFORMATION
  Report Type: 
  Country: BR (occurrence: BR)
  Receive Date: 20121120
  Receipt Date: 20121126
  Transmission Date: 20130627
  Serious: Yes (Hospitalization)
  Sender: FDA-Public Use
  Company Number: BR-AMGEN-BRASP2012073487

PATIENT
  Age: 55 Year
  Sex: Female
  Weight: 72 kg

DRUGS (4)
  1. ENBREL [Suspect]
     Indication: RHEUMATOID ARTHRITIS
     Dosage: 50 mg, once weekly
     Route: 058
     Dates: start: 20120921, end: 20121106
  2. REUQUINOL [Concomitant]
     Dosage: UNK
     Dates: end: 2012
  3. FOLIC ACID [Concomitant]
     Dosage: UNK
     Dates: end: 2012
  4. CALCIUM [Concomitant]
     Dosage: UNK
     Dates: end: 2012

REACTIONS (2)
  - Decreased immune responsiveness [Unknown]
  - Herpes zoster ophthalmic [Unknown]
